FAERS Safety Report 21466479 (Version 1)
Quarter: 2022Q4

REPORT INFORMATION
  Report Type: Report from Study
  Country: US (occurrence: US)
  Receive Date: 20221017
  Receipt Date: 20221017
  Transmission Date: 20230113
  Serious: Yes (Other)
  Sender: FDA-Public Use
  Company Number: US-BRISTOL-MYERS SQUIBB COMPANY-2022-048744

PATIENT
  Age: 68 Year
  Sex: Female
  Weight: 140.16 kg

DRUGS (4)
  1. REVLIMID [Suspect]
     Active Substance: LENALIDOMIDE
     Indication: Plasma cell myeloma
     Route: 048
     Dates: start: 202106
  2. REVLIMID [Suspect]
     Active Substance: LENALIDOMIDE
     Dosage: FREQUENCY- FOR 21 DAYS 7 DAYS OFF.
     Route: 048
  3. REVLIMID [Suspect]
     Active Substance: LENALIDOMIDE
     Route: 065
  4. ASPIRIN [Concomitant]
     Active Substance: ASPIRIN
     Indication: Product used for unknown indication
     Route: 065

REACTIONS (10)
  - Weight decreased [Unknown]
  - Hyperhidrosis [Unknown]
  - Fall [Unknown]
  - Urinary tract infection [Unknown]
  - Bronchitis [Unknown]
  - Sinusitis [Unknown]
  - Nasal congestion [Unknown]
  - Polyuria [Unknown]
  - Haematoma [Unknown]
  - Increased appetite [Unknown]

NARRATIVE: CASE EVENT DATE: 20220701
